FAERS Safety Report 10060488 (Version 1)
Quarter: 2014Q2

REPORT INFORMATION
  Report Type: Spontaneous
  Country: FR (occurrence: FR)
  Receive Date: 20140404
  Receipt Date: 20140404
  Transmission Date: 20141212
  Serious: Yes (Life-Threatening, Hospitalization)
  Sender: FDA-Public Use
  Company Number: FR-BRISTOL-MYERS SQUIBB COMPANY-20587036

PATIENT
  Age: 71 Year
  Sex: Male

DRUGS (7)
  1. GLUCOPHAGE [Suspect]
     Dosage: TOTAL DOSE: 2550MG?STOP DATE: JUN13
     Route: 048
     Dates: start: 20130927
  2. CRESTOR [Suspect]
     Dosage: STOP DATE:27SEP13
     Route: 048
     Dates: start: 201306
  3. NOVONORM [Concomitant]
  4. TRIATEC [Concomitant]
     Dosage: 2.5MG
     Dates: start: 201306
  5. PERMIXON [Concomitant]
  6. DOXAZOSIN [Concomitant]
  7. XALACOM [Concomitant]
     Dosage: 1 DROP IN EACH EYE IN THE EVENING

REACTIONS (4)
  - Tubulointerstitial nephritis [Recovered/Resolved with Sequelae]
  - Renal failure acute [Recovered/Resolved]
  - Proteinuria [Recovered/Resolved]
  - Lactic acidosis [Recovered/Resolved]
